FAERS Safety Report 7775750-X (Version None)
Quarter: 2011Q3

REPORT INFORMATION
  Report Type: 
  Country: None (occurrence: None)
  Receive Date: 20110923
  Receipt Date: 20110913
  Transmission Date: 20111222
  Serious: Yes (Life-Threatening, Hospitalization)
  Sender: FDA-Public Use
  Company Number: ZW-ABBOTT-11P-190-0731514-00

PATIENT
  Age: 39 Year
  Sex: Male

DRUGS (4)
  1. TEVOLAM [Concomitant]
     Indication: PRODUCT USED FOR UNKNOWN INDICATION
     Dates: start: 20110317, end: 20110517
  2. COTRIM [Concomitant]
     Indication: PRODUCT USED FOR UNKNOWN INDICATION
     Dates: start: 20020615
  3. FLUCONAZOLE [Concomitant]
     Indication: PRODUCT USED FOR UNKNOWN INDICATION
     Dates: start: 20100915
  4. LOPINAVIR/RITONAVIR [Suspect]
     Indication: HIV INFECTION
     Route: 048
     Dates: start: 20110317

REACTIONS (8)
  - RENAL FAILURE ACUTE [None]
  - JAUNDICE [None]
  - HILAR LYMPHADENOPATHY [None]
  - LYMPHADENITIS [None]
  - CHILLS [None]
  - PALLOR [None]
  - PYREXIA [None]
  - EXTRAPULMONARY TUBERCULOSIS [None]
